FAERS Safety Report 15610878 (Version 1)
Quarter: 2018Q4

REPORT INFORMATION
  Report Type: Spontaneous
  Country: US (occurrence: US)
  Receive Date: 20181113
  Receipt Date: 20181113
  Transmission Date: 20190205
  Serious: No
  Sender: FDA-Public Use
  Company Number: US-ROCHE-2082107

PATIENT
  Sex: Female
  Weight: 64.92 kg

DRUGS (2)
  1. LUCENTIS [Suspect]
     Active Substance: RANIBIZUMAB
     Indication: DIABETIC RETINOPATHY
     Dosage: EVERY 6-8 WEEKS CURRENTLY IN THE RIGHT EYE
     Route: 050
     Dates: start: 200910
  2. LUCENTIS [Suspect]
     Active Substance: RANIBIZUMAB
     Indication: RETINAL OEDEMA
     Dosage: INJECTIONS IN THE LEFT EYE
     Route: 050
     Dates: start: 200910

REACTIONS (2)
  - Glycosylated haemoglobin increased [Unknown]
  - Blood pressure increased [Unknown]
